FAERS Safety Report 7589451-4 (Version None)
Quarter: 2011Q3

REPORT INFORMATION
  Report Type: 
  Country: None (occurrence: None)
  Receive Date: 20110705
  Receipt Date: 20110622
  Transmission Date: 20111222
  Serious: Yes (Other)
  Sender: FDA-Public Use
  Company Number: US-ROCHE-773028

PATIENT
  Sex: Male
  Weight: 95.3 kg

DRUGS (2)
  1. ACCUTANE [Suspect]
     Route: 065
     Dates: start: 20010101
  2. ACCUTANE [Suspect]
     Route: 065
     Dates: start: 20050101, end: 20060101

REACTIONS (7)
  - COLITIS ULCERATIVE [None]
  - ANXIETY [None]
  - CROHN'S DISEASE [None]
  - INFLAMMATORY BOWEL DISEASE [None]
  - SMALL INTESTINAL OBSTRUCTION [None]
  - DEPRESSION [None]
  - HAEMORRHOIDS [None]
